FAERS Safety Report 8983798 (Version 1)
Quarter: 2012Q4

REPORT INFORMATION
  Report Type: 
  Country: BR (occurrence: BR)
  Receive Date: 20121224
  Receipt Date: 20121224
  Transmission Date: 20130627
  Serious: No
  Sender: FDA-Public Use
  Company Number: BR-ROCHE-1170478

PATIENT
  Sex: Female
  Weight: 50 kg

DRUGS (1)
  1. ROACUTAN [Suspect]
     Indication: ACNE
     Route: 048
     Dates: start: 201202, end: 20121130

REACTIONS (2)
  - Exposure during pregnancy [Unknown]
  - Liver disorder [Unknown]
